FAERS Safety Report 25806101 (Version 1)
Quarter: 2025Q3

REPORT INFORMATION
  Report Type: Spontaneous
  Country: EU (occurrence: EU)
  Receive Date: 20250916
  Receipt Date: 20250916
  Transmission Date: 20251020
  Serious: Yes (Hospitalization)
  Sender: TEVA
  Company Number: EU-ROCHE-1184344

PATIENT
  Age: 55 Year
  Sex: Female
  Weight: 78 kg

DRUGS (12)
  1. EPIRUBICIN [Suspect]
     Active Substance: EPIRUBICIN
     Indication: Breast cancer
     Dosage: DATE OF LAST DOSE PRIOR TO SAE:17/OCT/2012
     Route: 042
     Dates: start: 20120905
  2. FLUOROURACIL [Suspect]
     Active Substance: FLUOROURACIL
     Indication: Breast cancer
     Dosage: DATE OF LAST DOSE PRIOR TO SAE:17/OCT/2012
     Route: 042
     Dates: start: 20120905
  3. TRASTUZUMAB [Suspect]
     Active Substance: TRASTUZUMAB
     Indication: Breast cancer
     Route: 042
     Dates: start: 20121114, end: 20130206
  4. PLACEBO [Suspect]
     Active Substance: PLACEBO
     Indication: Breast cancer
     Route: 042
  5. PLACEBO [Suspect]
     Active Substance: PLACEBO
     Indication: Breast cancer
     Route: 042
  6. PLACEBO [Suspect]
     Active Substance: PLACEBO
     Indication: Breast cancer
     Route: 042
  7. PLACEBO [Suspect]
     Active Substance: PLACEBO
     Indication: Breast cancer
     Route: 042
  8. PLACEBO [Suspect]
     Active Substance: PLACEBO
     Indication: Breast cancer
     Dosage: LAST DOSE PRIOR TO SAE ON 26/DEC/2012, ON 16/JAN/2013? FREQUENCY TEXT:3 TIMES EVERY 21 DAYS.
     Route: 042
     Dates: start: 20121114, end: 20130206
  9. DOCETAXEL [Suspect]
     Active Substance: DOCETAXEL
     Indication: Breast cancer
     Dosage: DATE OF LAST DOSE PRIOR TO SAE:26/DEC/2012,  16/JAN/2013? FREQUENCY TEXT:2 TIMES EVERY 21 DAYS
     Route: 042
     Dates: start: 20121114
  10. PLAVIX [Concomitant]
     Active Substance: CLOPIDOGREL BISULFATE
     Indication: Product used for unknown indication
     Route: 065
  11. PROZAC [Concomitant]
     Active Substance: FLUOXETINE HYDROCHLORIDE
     Indication: Product used for unknown indication
     Route: 065
  12. CYCLOPHOSPHAMIDE [Suspect]
     Active Substance: CYCLOPHOSPHAMIDE
     Indication: Breast cancer
     Dosage: DATE OF LAST DOSE PRIOR TO SAE:17/OCT/2012
     Route: 042
     Dates: start: 20120905

REACTIONS (2)
  - Hypokalaemia [Recovered/Resolved]
  - Ejection fraction decreased [Not Recovered/Not Resolved]

NARRATIVE: CASE EVENT DATE: 20130116
